FAERS Safety Report 5823682-6 (Version None)
Quarter: 2008Q3

REPORT INFORMATION
  Report Type: 
  Country: None (occurrence: None)
  Receive Date: 20080725
  Receipt Date: 20080714
  Transmission Date: 20090109
  Serious: Yes (Hospitalization, Other)
  Sender: FDA-Public Use
  Company Number: US-PFIZER INC-2008050018

PATIENT
  Sex: Female
  Weight: 66.7 kg

DRUGS (10)
  1. CHANTIX [Suspect]
     Indication: SMOKING CESSATION THERAPY
     Dates: start: 20080201, end: 20080501
  2. OXYCONTIN [Interacting]
     Dosage: TEXT:TID
  3. PREVACID [Concomitant]
  4. CYMBALTA [Concomitant]
  5. LYRICA [Concomitant]
  6. LEVOTHYROXINE SODIUM [Concomitant]
  7. POTASSIUM CHLORIDE [Concomitant]
  8. VITAMIN B-12 [Concomitant]
  9. VITAMIN TAB [Concomitant]
  10. CALCIUM WITH VITAMIN D [Concomitant]

REACTIONS (4)
  - DRUG INTERACTION [None]
  - OVERDOSE [None]
  - SHOCK [None]
  - STUPOR [None]
